FAERS Safety Report 17204549 (Version 1)
Quarter: 2019Q4

REPORT INFORMATION
  Report Type: Spontaneous
  Country: JP (occurrence: JP)
  Receive Date: 20191226
  Receipt Date: 20191226
  Transmission Date: 20200122
  Serious: Yes (Hospitalization, Other)
  Sender: FDA-Public Use
  Company Number: JP-009507513-1912JPN001581J

PATIENT
  Age: 54 Year
  Sex: Female

DRUGS (1)
  1. KEYTRUDA [Suspect]
     Active Substance: PEMBROLIZUMAB
     Indication: BILE DUCT CANCER
     Dosage: UNK
     Route: 041
     Dates: start: 20191112

REACTIONS (3)
  - Malignant neoplasm progression [Unknown]
  - Hepatic enzyme increased [Unknown]
  - Ascites [Unknown]

NARRATIVE: CASE EVENT DATE: 2019
